FAERS Safety Report 6536564-1 (Version None)
Quarter: 2010Q1

REPORT INFORMATION
  Report Type: 
  Country: None (occurrence: None)
  Receive Date: 20100106
  Receipt Date: 20091229
  Transmission Date: 20100710
  Serious: Yes (Death)
  Sender: FDA-Public Use
  Company Number: 2010SP000352

PATIENT
  Age: 62 Year
  Sex: Female

DRUGS (5)
  1. MIRTAZAPINE [Suspect]
     Indication: DEPRESSION
     Dosage: 15 MG;QD;PO
     Route: 048
     Dates: start: 20091215, end: 20091217
  2. SULPRIDE (SULPIRIDE) [Suspect]
     Indication: DRUG USE FOR UNKNOWN INDICATION
     Dosage: 300 MG;QD;PO
     Route: 048
     Dates: start: 20091215, end: 20091218
  3. ZOLPIDEM TARTRATE [Concomitant]
  4. ETIZOLAM [Concomitant]
  5. CLOTIAZEPAM [Concomitant]

REACTIONS (1)
  - COMPLETED SUICIDE [None]
